FAERS Safety Report 15360364 (Version 1)
Quarter: 2018Q3

REPORT INFORMATION
  Report Type: Spontaneous
  Country: US (occurrence: US)
  Receive Date: 20180907
  Receipt Date: 20180907
  Transmission Date: 20181010
  Serious: No
  Sender: FDA-Public Use
  Company Number: US-PFIZER INC-2018358278

PATIENT
  Age: 60 Year
  Sex: Female

DRUGS (1)
  1. XELJANZ XR [Suspect]
     Active Substance: TOFACITINIB CITRATE
     Indication: LEUKOPENIA
     Dosage: 11 MG, 1X/DAY

REACTIONS (3)
  - Product use in unapproved indication [Unknown]
  - Skin exfoliation [Unknown]
  - Tinea infection [Unknown]
